FAERS Safety Report 6243444-8 (Version None)
Quarter: 2009Q2

REPORT INFORMATION
  Report Type: 
  Country: None (occurrence: None)
  Receive Date: 20090624
  Receipt Date: 20090616
  Transmission Date: 20091009
  Serious: Yes (Other)
  Sender: FDA-Public Use
  Company Number: GB-BAXTER-2009BH010171

PATIENT
  Age: 89 Year
  Sex: Male

DRUGS (3)
  1. GENTAMICIN [Suspect]
     Indication: DRUG USE FOR UNKNOWN INDICATION
     Route: 042
     Dates: start: 20090608, end: 20090608
  2. ACETAMINOPHEN W/ CODEINE [Concomitant]
     Indication: DRUG USE FOR UNKNOWN INDICATION
     Route: 065
  3. VANCOMYCIN [Concomitant]
     Indication: DRUG USE FOR UNKNOWN INDICATION
     Route: 065

REACTIONS (8)
  - BACK PAIN [None]
  - HYPERTENSION [None]
  - HYPOVENTILATION [None]
  - OXYGEN SATURATION DECREASED [None]
  - PERIPHERAL CIRCULATORY FAILURE [None]
  - RENAL FAILURE ACUTE [None]
  - TACHYCARDIA [None]
  - TROPONIN INCREASED [None]
